FAERS Safety Report 16731902 (Version 1)
Quarter: 2019Q3

REPORT INFORMATION
  Report Type: Spontaneous
  Country: US (occurrence: US)
  Receive Date: 20190822
  Receipt Date: 20190822
  Transmission Date: 20191005
  Serious: No
  Sender: FDA-Public Use
  Company Number: US-RISING PHARMACEUTICALS, INC.-2018RIS00430

PATIENT
  Age: 80 Year
  Sex: Female
  Weight: 68.93 kg

DRUGS (4)
  1. PROCTOZONE-HC [Suspect]
     Active Substance: HYDROCORTISONE
     Indication: HAEMORRHOIDS
     Dosage: 1/2 INCH WITH APPLICATOR 2X/DAY AS DIRECTED
     Route: 054
     Dates: start: 20180912
  2. BENAZEPRIL HCL [Concomitant]
     Active Substance: BENAZEPRIL HYDROCHLORIDE
  3. SIMVASTATIN. [Concomitant]
     Active Substance: SIMVASTATIN
  4. LEVOTHYROXINE. [Concomitant]
     Active Substance: LEVOTHYROXINE

REACTIONS (1)
  - Drug ineffective [Not Recovered/Not Resolved]

NARRATIVE: CASE EVENT DATE: 20180912
